FAERS Safety Report 7670775-7 (Version None)
Quarter: 2011Q3

REPORT INFORMATION
  Report Type: 
  Country: None (occurrence: None)
  Receive Date: 20110809
  Receipt Date: 20110801
  Transmission Date: 20111222
  Serious: Yes (Other)
  Sender: FDA-Public Use
  Company Number: US-SHIRE-ALL1-2011-02537

PATIENT
  Sex: Male
  Weight: 113.38 kg

DRUGS (7)
  1. ATIVAN [Concomitant]
     Indication: ANXIETY
     Dosage: 1 MG, AS REQ'D UP TO 4 TIMES DAILY
     Route: 048
     Dates: start: 19810101
  2. TRAZODONE HCL [Concomitant]
     Indication: SLEEP DISORDER
     Dosage: 50 MG, 1X/DAY:QD
     Route: 048
     Dates: start: 19910101
  3. ELAVIL [Concomitant]
     Indication: PAIN
     Dosage: 50 MG, 2X/DAY:BID
     Route: 048
     Dates: start: 19910101
  4. LITHIUM                            /00033702/ [Concomitant]
     Indication: BIPOLAR DISORDER
     Dosage: 300 MG, 1X/DAY:QD
     Route: 048
     Dates: start: 19910101
  5. RANITIDINE [Concomitant]
     Indication: DYSPEPSIA
     Dosage: 150 MG, 2X/DAY:BID
     Route: 048
     Dates: start: 19960101
  6. MORPHINE [Concomitant]
     Indication: ARTHRITIS
     Dosage: UNK UNK, UNKNOWN
     Route: 065
     Dates: start: 20010101, end: 20080101
  7. MAS (MIXED AMPHETAMINE SALTS) [Suspect]
     Indication: ATTENTION DEFICIT/HYPERACTIVITY DISORDER
     Dosage: 30 MG, 2X/DAY:BID
     Route: 048
     Dates: start: 20070101, end: 20110701

REACTIONS (9)
  - PAIN IN EXTREMITY [None]
  - CERUMEN IMPACTION [None]
  - RESTLESSNESS [None]
  - INAPPROPRIATE SCHEDULE OF DRUG ADMINISTRATION [None]
  - VERTIGO [None]
  - SCHIZOPHRENIA, PARANOID TYPE [None]
  - PANIC ATTACK [None]
  - OVERDOSE [None]
  - DRUG EFFECT DECREASED [None]
